FAERS Safety Report 15155775 (Version 1)
Quarter: 2018Q3

REPORT INFORMATION
  Report Type: Spontaneous
  Country: DE (occurrence: DE)
  Receive Date: 20180717
  Receipt Date: 20180717
  Transmission Date: 20181010
  Serious: Yes (Hospitalization)
  Sender: FDA-Public Use
  Company Number: DE-US WORLDMEDS, LLC-STA_00018867

PATIENT
  Age: 58 Year
  Sex: Female
  Weight: 51 kg

DRUGS (11)
  1. APOMORPHINE HYDROCHLORIDE [Suspect]
     Active Substance: APOMORPHINE HYDROCHLORIDE
     Indication: PARKINSON^S DISEASE
     Dosage: FROM 07.00 AM UNTIL 10.00 PM DAILY, BOLUS 8 MG DAILY
     Route: 058
     Dates: start: 20150817
  2. IBUPROFEN 600MG [Concomitant]
     Active Substance: IBUPROFEN
  3. MIRTAZAPIN 15MG [Concomitant]
  4. LEVOCOMP RET. 200 MG [Concomitant]
  5. PANTOPRAZOLE 40MG [Concomitant]
     Active Substance: PANTOPRAZOLE SODIUM
  6. QUETIAPINE 25 MG [Concomitant]
     Active Substance: QUETIAPINE
  7. COMTESS 200MG [Concomitant]
  8. MADOPAR LT 100MG [Concomitant]
  9. RAMIPRIL 2,5 MG [Concomitant]
     Active Substance: RAMIPRIL
  10. PRAMIPEXOLE 1,05 MG [Concomitant]
  11. LEVOCOMP 100 MG [Concomitant]

REACTIONS (4)
  - Panic attack [Not Recovered/Not Resolved]
  - Injection site necrosis [Recovered/Resolved]
  - Injection site nodule [Recovered/Resolved]
  - Dyspnoea [Not Recovered/Not Resolved]

NARRATIVE: CASE EVENT DATE: 201509
